FAERS Safety Report 16936370 (Version 2)
Quarter: 2020Q2

REPORT INFORMATION
  Report Type: Report from Study
  Country: None (occurrence: US)
  Receive Date: 20191018
  Receipt Date: 20200511
  Transmission Date: 20200713
  Serious: Yes (Hospitalization)
  Sender: FDA-Public Use
  Company Number: US-ABBVIE-19K-163-2911133-00

PATIENT
  Age: 60 Year
  Sex: Female
  Weight: 77.18 kg

DRUGS (3)
  1. HUMIRA [Suspect]
     Active Substance: ADALIMUMAB
     Indication: RHEUMATOID ARTHRITIS
  2. METHOTREXATE. [Concomitant]
     Active Substance: METHOTREXATE
     Indication: PRODUCT USED FOR UNKNOWN INDICATION
  3. HUMIRA [Suspect]
     Active Substance: ADALIMUMAB
     Indication: PSORIATIC ARTHROPATHY
     Dosage: CITRATE FREE
     Route: 058
     Dates: start: 20190731, end: 20190923

REACTIONS (11)
  - Fatigue [Recovered/Resolved]
  - Fatigue [Not Recovered/Not Resolved]
  - Mobility decreased [Recovering/Resolving]
  - Sepsis [Unknown]
  - Acute respiratory failure [Unknown]
  - Therapeutic response shortened [Not Recovered/Not Resolved]
  - Malaise [Unknown]
  - Feeling abnormal [Recovering/Resolving]
  - Arthralgia [Not Recovered/Not Resolved]
  - Pneumonia [Recovered/Resolved]
  - Pneumothorax [Recovered/Resolved]

NARRATIVE: CASE EVENT DATE: 2019
